FAERS Safety Report 9508629 (Version 1)
Quarter: 2013Q1

REPORT INFORMATION
  Report Type: Spontaneous
  Country: US (occurrence: None)
  Receive Date: 20130305
  Receipt Date: 20130305
  Transmission Date: 20140127
  Serious: Yes (Other)
  Sender: FDA-Public Use
  Company Number: 163-21880-12081617

PATIENT
  Age: 74 Year
  Sex: Female

DRUGS (8)
  1. REVLIMID [Suspect]
     Indication: PLASMA CELL MYELOMA
     Dosage: 21 IN 28 D
     Route: 048
     Dates: start: 20111105, end: 2012
  2. MORPHINE (MORPHINE) (UNKNOWN) (MORPHINE) [Concomitant]
  3. ASPIRIN (UNKNOWN) [Concomitant]
  4. DEXAMETHASONE (DEXAMETHASONE) (UNKNOWN) [Concomitant]
  5. NABUMETONE (NABUMETONE) (UNKNOWN) [Concomitant]
  6. CALCITONIN-SALMON (CALCITONIN, SALMON) (UNKNOWN) [Concomitant]
  7. FLEXERIL (CYCLOBENZAPRINE HYDROCHLORIDE) (UNKNOWN) [Concomitant]
  8. ERGOCALCIFEROL (ERGOCALCIFEROL) (UNKNOWN) [Concomitant]

REACTIONS (3)
  - Rash erythematous [None]
  - Dyspnoea [None]
  - Weight increased [None]
